FAERS Safety Report 7892423-3 (Version None)
Quarter: 2011Q4

REPORT INFORMATION
  Report Type: 
  Country: None (occurrence: None)
  Receive Date: 20111101
  Receipt Date: 20111019
  Transmission Date: 20120403
  Serious: Yes (Hospitalization)
  Sender: FDA-Public Use
  Company Number: 1084959

PATIENT
  Age: 58 Year
  Sex: Male

DRUGS (1)
  1. PACLITAXEL [Suspect]
     Indication: LUNG NEOPLASM MALIGNANT
     Dosage: 138 MG MILLIGRAM(S) INTRAVENOUS (NOT OTHERWISE SPECIFIED)
     Route: 042
     Dates: start: 20110819, end: 20110819

REACTIONS (4)
  - DISTURBANCE IN ATTENTION [None]
  - RESPIRATORY ACIDOSIS [None]
  - BRONCHOSPASM [None]
  - ATELECTASIS [None]
